FAERS Safety Report 8563930-5 (Version None)
Quarter: 2012Q3

REPORT INFORMATION
  Report Type: 
  Country: None (occurrence: None)
  Receive Date: 20120723
  Receipt Date: 20120618
  Transmission Date: 20120928
  Serious: Yes (Other)
  Sender: FDA-Public Use
  Company Number: 2012032686

PATIENT
  Sex: Male
  Weight: 55.3388 kg

DRUGS (7)
  1. PROGRAF [Concomitant]
  2. CELLCEPT [Suspect]
     Dosage: 500 MG BID, ORAL
     Route: 048
  3. BERINERT [Suspect]
     Indication: TRANSPLANT REJECTION
     Dosage: 1100 UNITS IVP OVER 6 MIN VIA SYRINGE PUMP),
     Dates: start: 20120616
  4. BERINERT [Suspect]
     Indication: TRANSPLANT REJECTION
     Dosage: 1100 UNITS IVP OVER 6 MIN VIA SYRINGE PUMP),
     Dates: start: 20120618
  5. CAMPATH [Suspect]
     Indication: PREMEDICATION
     Dosage: 30 MG X 1 PDO#0 SUBCUTANEOUS
     Route: 058
  6. PREDNISONE [Concomitant]
  7. GANCICLOVIR [Concomitant]

REACTIONS (12)
  - HAEMATOCRIT DECREASED [None]
  - RENAL HAEMORRHAGE [None]
  - HYDRONEPHROSIS [None]
  - ATELECTASIS [None]
  - OFF LABEL USE [None]
  - HAEMOGLOBIN DECREASED [None]
  - INCISION SITE HAEMORRHAGE [None]
  - SUBCUTANEOUS EMPHYSEMA [None]
  - THROMBOCYTOPENIA [None]
  - CHOLELITHIASIS [None]
  - ASCITES [None]
  - PLEURAL EFFUSION [None]
